FAERS Safety Report 17589970 (Version 1)
Quarter: 2020Q1

REPORT INFORMATION
  Report Type: Report from Study
  Country: CZ (occurrence: CZ)
  Receive Date: 20200327
  Receipt Date: 20200327
  Transmission Date: 20200409
  Serious: Yes (Other)
  Sender: FDA-Public Use
  Company Number: CZ-TEVA-2020-CZ-1213913

PATIENT
  Age: 44 Year
  Sex: Female

DRUGS (4)
  1. COPAXONE [Suspect]
     Active Substance: GLATIRAMER ACETATE
     Indication: CLINICALLY ISOLATED SYNDROME
     Dosage: 20 MILLIGRAM/MILLILITERS DAILY;
     Route: 058
     Dates: start: 20190827
  2. VIGANTOL [Concomitant]
     Dosage: 4 GTT DAILY;
  3. LETROX [Concomitant]
     Active Substance: LEVOTHYROXINE SODIUM
     Dosage: 50 MILLIGRAM DAILY;
  4. ORFIRIL [Concomitant]
     Active Substance: VALPROATE SODIUM
     Dosage: 600 MILLIGRAM DAILY;

REACTIONS (14)
  - Palpitations [Recovered/Resolved]
  - Erythema [Recovered/Resolved]
  - Fear of injection [Recovered/Resolved]
  - Vertigo [Recovered/Resolved]
  - Nausea [Recovered/Resolved]
  - Asthenia [Recovered/Resolved]
  - Fear [Recovered/Resolved]
  - Vertigo [Recovered/Resolved]
  - Immediate post-injection reaction [Recovered/Resolved]
  - Hot flush [Recovered/Resolved]
  - Mental disorder [Unknown]
  - Chills [Recovered/Resolved]
  - Headache [Recovered/Resolved]
  - Product packaging issue [Unknown]

NARRATIVE: CASE EVENT DATE: 20200320
